FAERS Safety Report 4358252-2 (Version None)
Quarter: 2004Q2

REPORT INFORMATION
  Report Type: 
  Country: None (occurrence: None)
  Receive Date: 20040510
  Receipt Date: 20040330
  Transmission Date: 20050107
  Serious: Yes (Death)
  Sender: FDA-Public Use
  Company Number: A01200401533

PATIENT
  Age: 75 Year
  Sex: Female

DRUGS (3)
  1. PLAVIX [Suspect]
     Indication: ACUTE CORONARY SYNDROME
     Dosage: 75 MG OD ORAL
     Route: 048
     Dates: end: 20040318
  2. (FONDAPARINUX) - UNKNOWN - UNIT DOSE : UNKNOWN [Suspect]
     Indication: ACUTE CORONARY SYNDROME
     Dosage: 2.5 MG SUBCUTANEOUS
     Route: 058
     Dates: start: 20040314, end: 20040316
  3. ENOXAPARIN SODIUM [Suspect]
     Indication: ACUTE CORONARY SYNDROME
     Dosage: 170 MG SUBCUTANEOUS
     Route: 058
     Dates: start: 20040314, end: 20040316

REACTIONS (5)
  - ANAEMIA [None]
  - CARDIOGENIC SHOCK [None]
  - HAEMODYNAMIC INSTABILITY [None]
  - MYOCARDIAL INFARCTION [None]
  - PUNCTURE SITE HAEMORRHAGE [None]
